FAERS Safety Report 9003944 (Version 1)
Quarter: 2013Q1

REPORT INFORMATION
  Report Type: Spontaneous
  Country: US (occurrence: US)
  Receive Date: 20130108
  Receipt Date: 20130108
  Transmission Date: 20140127
  Serious: Yes (Other)
  Sender: FDA-Public Use
  Company Number: US-TEVA-379191USA

PATIENT
  Age: 18 Year
  Sex: Male
  Weight: 63.56 kg

DRUGS (3)
  1. PROAIR HFA [Suspect]
     Indication: WHEEZING
     Dosage: 360 MICROGRAM DAILY; 2 PUFFS PRN
     Route: 055
     Dates: start: 20121228, end: 20130101
  2. AZITHROMYCIN [Concomitant]
     Indication: RESPIRATORY TRACT INFECTION
     Dosage: 250 MILLIGRAM DAILY;
     Route: 048
     Dates: start: 20121228, end: 20130102
  3. FLOVENT [Concomitant]
     Indication: WHEEZING
     Dosage: 2 PUFFS
     Route: 055
     Dates: start: 20121228

REACTIONS (3)
  - Anaphylactic reaction [Recovered/Resolved]
  - Chest discomfort [Recovered/Resolved]
  - Urticaria [Recovered/Resolved]
